FAERS Safety Report 15878446 (Version 1)
Quarter: 2019Q1

REPORT INFORMATION
  Report Type: Spontaneous
  Country: FR (occurrence: FR)
  Receive Date: 20190128
  Receipt Date: 20190128
  Transmission Date: 20190417
  Serious: Yes (Death, Life-Threatening)
  Sender: FDA-Public Use
  Company Number: FR-009507513-0603FRA00068

PATIENT
  Age: 69 Year
  Sex: Male

DRUGS (11)
  1. ARICEPT [Concomitant]
     Active Substance: DONEPEZIL HYDROCHLORIDE
     Indication: UNEVALUABLE EVENT
     Route: 065
  2. IMIPENEM AND CILASTATIN [Suspect]
     Active Substance: CILASTATIN SODIUM\IMIPENEM
     Dosage: 1 GRAM, TID
     Route: 042
     Dates: start: 20040726, end: 20040818
  3. CIFLOX (CIPROFLOXACIN) [Suspect]
     Active Substance: CIPROFLOXACIN
     Indication: PNEUMONIA PSEUDOMONAL
     Dosage: UNK
     Route: 065
     Dates: start: 20040726, end: 200407
  4. SEROPRAM (CITALOPRAM HYDROBROMIDE) [Concomitant]
     Active Substance: CITALOPRAM HYDROBROMIDE
     Indication: UNEVALUABLE EVENT
     Route: 065
  5. ROCEPHIN [Concomitant]
     Active Substance: CEFTRIAXONE SODIUM
     Indication: PNEUMONIA PSEUDOMONAL
     Route: 065
     Dates: start: 20040605, end: 20040624
  6. ERYTHROMYCIN. [Concomitant]
     Active Substance: ERYTHROMYCIN
     Indication: PNEUMONIA PSEUDOMONAL
     Route: 065
     Dates: start: 20040605, end: 20040624
  7. CREON [Concomitant]
     Active Substance: PANCRELIPASE AMYLASE\PANCRELIPASE LIPASE\PANCRELIPASE PROTEASE
     Indication: UNEVALUABLE EVENT
     Route: 065
  8. IMIPENEM AND CILASTATIN [Suspect]
     Active Substance: CILASTATIN SODIUM\IMIPENEM
     Indication: PNEUMONIA PSEUDOMONAL
     Dosage: UNK
     Route: 042
     Dates: start: 20040726, end: 200407
  9. CIFLOX (CIPROFLOXACIN) [Suspect]
     Active Substance: CIPROFLOXACIN
     Dosage: 400 MG, BID
     Route: 042
     Dates: start: 20040726, end: 20040818
  10. DEPAKINE CHRONO [Concomitant]
     Active Substance: VALPROATE SODIUM
     Indication: UNEVALUABLE EVENT
     Route: 065
  11. ATARAX [Concomitant]
     Active Substance: HYDROXYZINE HYDROCHLORIDE
     Indication: UNEVALUABLE EVENT
     Route: 065

REACTIONS (3)
  - Oliguria [Unknown]
  - Dehydration [Unknown]
  - Acute kidney injury [Fatal]

NARRATIVE: CASE EVENT DATE: 20040818
